FAERS Safety Report 8904630 (Version 3)
Quarter: 2013Q3

REPORT INFORMATION
  Report Type: Spontaneous
  Country: US (occurrence: US)
  Receive Date: 20121112
  Receipt Date: 20130808
  Transmission Date: 20140515
  Serious: Yes (Hospitalization, Other)
  Sender: FDA-Public Use
  Company Number: US-009507513-1211USA004460

PATIENT
  Sex: Female

DRUGS (7)
  1. FOSAMAX [Suspect]
     Indication: OSTEOPOROSIS
     Dosage: 10 MG, 4 DAILY
     Route: 048
     Dates: start: 2000, end: 2005
  2. FOSAMAX [Suspect]
     Dosage: 40 MG, DAILY
     Route: 048
     Dates: start: 2000, end: 2005
  3. FOSAMAX [Suspect]
     Dosage: 70 MG, WEEKLY
     Route: 048
     Dates: start: 2000, end: 2005
  4. BONIVA [Suspect]
     Indication: OSTEOPOROSIS
     Dosage: 150 MG, MONTHLY
     Route: 048
     Dates: start: 2006
  5. METFORMIN [Concomitant]
     Indication: TYPE 2 DIABETES MELLITUS
  6. GLIPIZIDE [Concomitant]
     Indication: TYPE 2 DIABETES MELLITUS
     Dosage: 5 MG, QID
  7. ACTOS [Concomitant]
     Indication: TYPE 2 DIABETES MELLITUS
     Dosage: 45 MG, DAILY
     Route: 048

REACTIONS (30)
  - Femur fracture [Unknown]
  - Intramedullary rod insertion [Unknown]
  - Wrong drug administered [Unknown]
  - Anaemia [Recovering/Resolving]
  - Leukopenia [Unknown]
  - Cardiac failure congestive [Unknown]
  - Hysterectomy [Unknown]
  - Biopsy breast [Unknown]
  - Colonoscopy [Unknown]
  - Low turnover osteopathy [Unknown]
  - Depression [Unknown]
  - Anxiety [Unknown]
  - Impaired healing [Unknown]
  - Impaired healing [Unknown]
  - Skin hypertrophy [Unknown]
  - Myelodysplastic syndrome [Unknown]
  - Anaemia [Not Recovered/Not Resolved]
  - Cardiac failure congestive [Not Recovered/Not Resolved]
  - Wheezing [Unknown]
  - Hypertensive heart disease [Unknown]
  - Hyperlipidaemia [Unknown]
  - Osteoarthritis [Unknown]
  - Arteriosclerosis coronary artery [Unknown]
  - Intervertebral disc degeneration [Unknown]
  - Spinal osteoarthritis [Unknown]
  - Neuropathy peripheral [Unknown]
  - Adenotonsillectomy [Unknown]
  - Haemorrhoid operation [Unknown]
  - Retinal operation [Unknown]
  - Gastrooesophageal reflux disease [Unknown]
